FAERS Safety Report 20601492 (Version 1)
Quarter: 2022Q1

REPORT INFORMATION
  Report Type: Spontaneous
  Country: AU (occurrence: AU)
  Receive Date: 20220316
  Receipt Date: 20220316
  Transmission Date: 20220423
  Serious: Yes (Other)
  Sender: FDA-Public Use
  Company Number: AU-SA-SAC20220314001849

PATIENT
  Age: 81 Year
  Sex: Female

DRUGS (13)
  1. IRBESARTAN [Suspect]
     Active Substance: IRBESARTAN
     Dosage: 200 MG, QD
  2. LAMOTRIGINE [Suspect]
     Active Substance: LAMOTRIGINE
  3. FYCOMPA [Suspect]
     Active Substance: PERAMPANEL
     Dosage: 6 MG, QD
  4. OXCARBAZEPINE [Suspect]
     Active Substance: OXCARBAZEPINE
     Dosage: 300 MG, BID
  5. OLANZAPINE [Suspect]
     Active Substance: OLANZAPINE
     Dosage: 2.5 MG, QD
  6. DILTIAZEM HYDROCHLORIDE [Suspect]
     Active Substance: DILTIAZEM HYDROCHLORIDE
     Dosage: 360 MG, QD
  7. CLOZAPINE [Suspect]
     Active Substance: CLOZAPINE
  8. VALPROATE SODIUM [Suspect]
     Active Substance: VALPROATE SODIUM
     Dosage: 200 MG, QD
  9. CITALOPRAM HYDROBROMIDE [Suspect]
     Active Substance: CITALOPRAM HYDROBROMIDE
     Dosage: 10 MG, QD
  10. DOCUSATE SODIUM [Suspect]
     Active Substance: DOCUSATE SODIUM
  11. ACETAMINOPHEN [Suspect]
     Active Substance: ACETAMINOPHEN
     Dosage: 665 MG, BID
  12. CLOZAPINE [Suspect]
     Active Substance: CLOZAPINE
  13. CHOLECALCIFEROL [Suspect]
     Active Substance: CHOLECALCIFEROL

REACTIONS (10)
  - Blood pressure systolic increased [Unknown]
  - Bradycardia [Unknown]
  - Coma scale abnormal [Unknown]
  - Confusional state [Unknown]
  - Heart rate irregular [Unknown]
  - Oxygen saturation decreased [Unknown]
  - Somnolence [Unknown]
  - Vital functions abnormal [Unknown]
  - Respiratory rate [Unknown]
  - Medication error [Unknown]
